FAERS Safety Report 7764590-3 (Version None)
Quarter: 2011Q3

REPORT INFORMATION
  Report Type: 
  Country: None (occurrence: None)
  Receive Date: 20110916
  Receipt Date: 20110901
  Transmission Date: 20111222
  Serious: Yes (Other)
  Sender: FDA-Public Use
  Company Number: TPA2011A03751

PATIENT
  Age: 79 Year
  Sex: Male

DRUGS (7)
  1. LIPITOR [Concomitant]
  2. PROTECADIN (LAFUTIDINE) [Concomitant]
  3. ENALAPRIL MALEATE [Concomitant]
  4. FEBURIC (FEBUXOSTAT) [Suspect]
     Indication: HYPERURICAEMIA
     Dosage: 20 MG (20 MG, 1 IN  1 D) PER ORAL
     Route: 048
     Dates: start: 20110526, end: 20110616
  5. GASMOTIN (MOSAPRIDE CITRATE) [Concomitant]
  6. CALBLOCK (AZELNIDIPINE) [Concomitant]
  7. FLIVAS (NAFTOPIDIL) [Concomitant]

REACTIONS (3)
  - DRUG ERUPTION [None]
  - HAEMORRHAGE SUBCUTANEOUS [None]
  - BLOOD LACTATE DEHYDROGENASE INCREASED [None]
